FAERS Safety Report 12078096 (Version 1)
Quarter: 2016Q1

REPORT INFORMATION
  Report Type: Spontaneous
  Country: DE (occurrence: DE)
  Receive Date: 20160215
  Receipt Date: 20160215
  Transmission Date: 20160526
  Serious: Yes (Other)
  Sender: FDA-Public Use
  Company Number: DE-AUROBINDO-AUR-APL-2015-11685

PATIENT
  Age: 73 Year
  Sex: Female

DRUGS (1)
  1. FLUCONAZOLE ACTAVIS [Suspect]
     Active Substance: FLUCONAZOLE
     Indication: DERMATOPHYTOSIS OF NAIL
     Dosage: 1 DF, PER WEEK
     Route: 048
     Dates: start: 201410, end: 201506

REACTIONS (1)
  - Alopecia areata [Recovering/Resolving]

NARRATIVE: CASE EVENT DATE: 201505
